FAERS Safety Report 12788152 (Version 1)
Quarter: 2016Q3

REPORT INFORMATION
  Report Type: Spontaneous
  Country: US (occurrence: US)
  Receive Date: 20160928
  Receipt Date: 20160928
  Transmission Date: 20161109
  Serious: No
  Sender: FDA-Public Use
  Company Number: US-TEVA-658052USA

PATIENT
  Age: 21 Year
  Sex: Female

DRUGS (1)
  1. SPRINTEC [Suspect]
     Active Substance: ETHINYL ESTRADIOL\NORGESTIMATE
     Indication: ENDOMETRIOSIS
     Route: 065

REACTIONS (5)
  - Menstruation delayed [Unknown]
  - Mood swings [Unknown]
  - Product use issue [Unknown]
  - Vaginal haemorrhage [Unknown]
  - Emotional disorder [Unknown]
